FAERS Safety Report 7270277-6 (Version None)
Quarter: 2011Q1

REPORT INFORMATION
  Report Type: 
  Country: None (occurrence: None)
  Receive Date: 20110125
  Receipt Date: 20110125
  Transmission Date: 20110831
  Serious: Yes (Other)
  Sender: FDA-Public Use
  Company Number: None

PATIENT
  Age: 25 Year
  Sex: Female
  Weight: 147.419 kg

DRUGS (4)
  1. IMITREX [Suspect]
     Indication: MIGRAINE
     Dosage: 25MG 1-2 A DAY PO
     Route: 048
     Dates: start: 20090501, end: 20090601
  2. EFFEXOR XR [Concomitant]
  3. RISPERDAL [Concomitant]
  4. DEPAKOTE [Concomitant]

REACTIONS (2)
  - FEELING OF BODY TEMPERATURE CHANGE [None]
  - HEADACHE [None]
